FAERS Safety Report 23525057 (Version 1)
Quarter: 2024Q1

REPORT INFORMATION
  Report Type: Spontaneous
  Country: ES (occurrence: ES)
  Receive Date: 20240215
  Receipt Date: 20240215
  Transmission Date: 20240410
  Serious: Yes (Other)
  Sender: FDA-Public Use
  Company Number: None

PATIENT
  Age: 66 Year
  Sex: Female

DRUGS (8)
  1. QUETIAPINE [Suspect]
     Active Substance: QUETIAPINE
     Dosage: DAILY DOSE: 200 MILLIGRAM
     Dates: start: 20210201
  2. OLANZAPINE [Suspect]
     Active Substance: OLANZAPINE
     Indication: Bipolar I disorder
     Dosage: DAILY DOSE: 20 MILLIGRAM
     Dates: start: 20210123, end: 20210201
  3. CLONAZEPAM [Suspect]
     Active Substance: CLONAZEPAM
     Indication: Insomnia
     Dates: start: 20210615
  4. DESVENLAFAXINE [Concomitant]
     Active Substance: DESVENLAFAXINE
     Dosage: DAILY DOSE: 50 MILLIGRAM
     Dates: start: 20210615, end: 202109
  5. DESVENLAFAXINE [Concomitant]
     Active Substance: DESVENLAFAXINE
     Dosage: DAILY DOSE: 200 MILLIGRAM
     Dates: start: 202109
  6. DESVENLAFAXINE [Concomitant]
     Active Substance: DESVENLAFAXINE
     Dosage: DAILY DOSE: 100 MILLIGRAM
     Dates: end: 202109
  7. LEVOTHYROXINE [Concomitant]
     Active Substance: LEVOTHYROXINE\LEVOTHYROXINE SODIUM
  8. LAMOTRIGINE [Concomitant]
     Active Substance: LAMOTRIGINE
     Dosage: DAILY DOSE: 100 MILLIGRAM
     Dates: start: 202109

REACTIONS (6)
  - Dysarthria [Recovered/Resolved]
  - Somnolence [Recovered/Resolved]
  - Emotional poverty [Recovered/Resolved]
  - Blunted affect [Recovered/Resolved]
  - Sleep disorder [Recovered/Resolved]
  - Off label use [Unknown]

NARRATIVE: CASE EVENT DATE: 20210101
